FAERS Safety Report 10452103 (Version 1)
Quarter: 2014Q3

REPORT INFORMATION
  Report Type: Spontaneous
  Country: US (occurrence: US)
  Receive Date: 20140915
  Receipt Date: 20140915
  Transmission Date: 20150326
  Serious: Yes (Hospitalization, Other)
  Sender: FDA-Public Use
  Company Number: US-AMGEN-USASP2014069066

PATIENT
  Age: 71 Year
  Sex: Female

DRUGS (1)
  1. ENBREL [Suspect]
     Active Substance: ETANERCEPT
     Indication: RHEUMATOID ARTHRITIS
     Dosage: 50 MG, QWK
     Route: 065
     Dates: start: 20130927

REACTIONS (18)
  - Nausea [Not Recovered/Not Resolved]
  - Pancreatic cyst [Recovered/Resolved]
  - Vaginal discharge [Recovered/Resolved]
  - Abdominal pain [Not Recovered/Not Resolved]
  - Diarrhoea [Recovered/Resolved]
  - Urinary tract infection [Recovered/Resolved]
  - Ovarian cyst [Recovered/Resolved]
  - Arthralgia [Not Recovered/Not Resolved]
  - Pain [Recovered/Resolved]
  - Joint stiffness [Not Recovered/Not Resolved]
  - Infection [Not Recovered/Not Resolved]
  - Weight decreased [Not Recovered/Not Resolved]
  - Arthritis [Not Recovered/Not Resolved]
  - Mobility decreased [Not Recovered/Not Resolved]
  - Vomiting [Not Recovered/Not Resolved]
  - Pyrexia [Recovered/Resolved]
  - Abdominal distension [Recovered/Resolved]
  - Abdominal distension [Not Recovered/Not Resolved]

NARRATIVE: CASE EVENT DATE: 2014
